FAERS Safety Report 6255693-3 (Version None)
Quarter: 2009Q3

REPORT INFORMATION
  Report Type: 
  Country: None (occurrence: None)
  Receive Date: 20090701
  Receipt Date: 20090622
  Transmission Date: 20100115
  Serious: Yes (Hospitalization)
  Sender: FDA-Public Use
  Company Number: GXKR2009CA07201

PATIENT
  Age: 6 Year
  Sex: Male

DRUGS (8)
  1. CYCLOSPORINE [Suspect]
     Indication: PROPHYLAXIS AGAINST GRAFT VERSUS HOST DISEASE
     Dosage: SEE IMAGE
  2. METHYLPREDNISOLONE [Concomitant]
  3. NIFEDIPINE [Concomitant]
  4. AMLODIPINE [Concomitant]
  5. BUSULFAN (BUSULFAN) [Concomitant]
  6. FLUDARABINE PHOSPHATE [Concomitant]
  7. ANTI-THYMOCYTE GLOBULIN NOS [Concomitant]
  8. MYCOPHENOLATE MOFETIL [Concomitant]

REACTIONS (4)
  - DRUG INEFFECTIVE [None]
  - LEUKAEMIA RECURRENT [None]
  - POST TRANSPLANT DISTAL LIMB SYNDROME [None]
  - STEM CELL TRANSPLANT [None]
